FAERS Safety Report 6464732-6 (Version None)
Quarter: 2009Q4

REPORT INFORMATION
  Report Type: 
  Country: None (occurrence: None)
  Receive Date: 20091124
  Receipt Date: 20091113
  Transmission Date: 20100525
  Serious: Yes (Hospitalization, Other)
  Sender: FDA-Public Use
  Company Number: 232674K08USA

PATIENT
  Age: 50 Year
  Sex: Female

DRUGS (2)
  1. REBIF [Suspect]
     Indication: MULTIPLE SCLEROSIS
     Dosage: 44 MCG, 3 IN1 DAYS, SUBCUTANEOUS
     Route: 058
     Dates: start: 20050523
  2. NAMENDA [Concomitant]

REACTIONS (17)
  - CONDITION AGGRAVATED [None]
  - CONSCIOUSNESS FLUCTUATING [None]
  - DEPRESSION [None]
  - DRY MOUTH [None]
  - FAECAL INCONTINENCE [None]
  - HYPERSENSITIVITY [None]
  - INJECTION SITE NECROSIS [None]
  - INJECTION SITE SCAB [None]
  - MICTURITION URGENCY [None]
  - MULTIPLE SCLEROSIS RELAPSE [None]
  - NAUSEA [None]
  - PRESYNCOPE [None]
  - PROCEDURAL PAIN [None]
  - ROTATOR CUFF SYNDROME [None]
  - SUICIDAL IDEATION [None]
  - URINARY INCONTINENCE [None]
  - VOMITING [None]
